FAERS Safety Report 4785115-0 (Version None)
Quarter: 2005Q3

REPORT INFORMATION
  Report Type: 
  Country: None (occurrence: None)
  Receive Date: 20050928
  Receipt Date: 20050912
  Transmission Date: 20060218
  Serious: Yes (Death, Life-Threatening, Other)
  Sender: FDA-Public Use
  Company Number: JP_050606819

PATIENT
  Age: 74 Year
  Sex: Male
  Weight: 50 kg

DRUGS (6)
  1. GEMZAR [Suspect]
     Indication: PANCREATIC CARCINOMA STAGE IV
     Dosage: 1200 MG OTHER
     Route: 050
     Dates: start: 20050414, end: 20050427
  2. VANCOMYCIN [Suspect]
     Indication: PNEUMONIA STAPHYLOCOCCAL
     Dosage: 750 MG/2 DAY
     Dates: start: 20050517, end: 20050602
  3. RADIOTHERAPY [Concomitant]
  4. KYTRIL [Concomitant]
  5. DECADRON [Concomitant]
  6. MORPHINE [Concomitant]

REACTIONS (9)
  - ACUTE RESPIRATORY DISTRESS SYNDROME [None]
  - ANAEMIA [None]
  - NEUTROPHIL COUNT DECREASED [None]
  - PNEUMONIA STAPHYLOCOCCAL [None]
  - PROTHROMBIN TIME PROLONGED [None]
  - RENAL FAILURE [None]
  - SEPSIS [None]
  - UROBILIN URINE PRESENT [None]
  - WHITE BLOOD CELL COUNT DECREASED [None]
